FAERS Safety Report 6119944-8 (Version None)
Quarter: 2009Q1

REPORT INFORMATION
  Report Type: 
  Country: None (occurrence: None)
  Receive Date: 20090316
  Receipt Date: 20090305
  Transmission Date: 20090719
  Serious: Yes (Other)
  Sender: FDA-Public Use
  Company Number: US-ROCHE-620710

PATIENT

DRUGS (1)
  1. ISOTRETINOIN [Suspect]
     Indication: NEUROBLASTOMA
     Dosage: 160 MG/M2/D IN TWO DIVIDED DOSES FOR 14 DAYS EVERY 28 DAYS
     Route: 065

REACTIONS (1)
  - THYROID CANCER [None]
